FAERS Safety Report 8404429-6 (Version None)
Quarter: 2012Q2

REPORT INFORMATION
  Report Type: 
  Country: None (occurrence: None)
  Receive Date: 20120601
  Receipt Date: 20111112
  Transmission Date: 20120825
  Serious: No
  Sender: FDA-Public Use
  Company Number: US-NOVEN-11US003634

PATIENT
  Sex: Male

DRUGS (4)
  1. MULTIVITAMIN                       /00097801/ [Concomitant]
     Indication: MEDICAL DIET
     Dosage: ONE DAILY
     Route: 048
  2. GRISEOFULVIN [Concomitant]
     Indication: INFECTION
     Dosage: 125MG/5 ML TAKE 4 TSP
     Route: 048
  3. ALBUTEROL [Concomitant]
     Indication: DYSPNOEA
     Dosage: PRN
     Route: 055
  4. DAYTRANA [Suspect]
     Indication: ATTENTION DEFICIT/HYPERACTIVITY DISORDER
     Dosage: 15 MG, QD
     Route: 062
     Dates: start: 20110501

REACTIONS (3)
  - ACCIDENTAL EXPOSURE [None]
  - PRODUCT QUALITY ISSUE [None]
  - NO ADVERSE EVENT [None]
